APPROVED DRUG PRODUCT: DUVOID
Active Ingredient: BETHANECHOL CHLORIDE
Strength: 25MG
Dosage Form/Route: TABLET;ORAL
Application: A086263 | Product #001 | TE Code: AA
Applicant: CHARTWELL RX SCIENCES LLC
Approved: Approved Prior to Jan 1, 1982 | RLD: No | RS: No | Type: RX